FAERS Safety Report 12653821 (Version 4)
Quarter: 2016Q4

REPORT INFORMATION
  Report Type: Spontaneous
  Country: US (occurrence: US)
  Receive Date: 20160816
  Receipt Date: 20161117
  Transmission Date: 20170207
  Serious: Yes (Life-Threatening, Hospitalization, Disabling, Other)
  Sender: FDA-Public Use
  Company Number: US-009507513-1608USA007283

PATIENT
  Age: 71 Year
  Sex: Male
  Weight: 65.5 kg

DRUGS (3)
  1. KEYTRUDA [Suspect]
     Active Substance: PEMBROLIZUMAB
     Dosage: 160 MG, Q3W
     Dates: start: 20160325, end: 20160325
  2. KEYTRUDA [Suspect]
     Active Substance: PEMBROLIZUMAB
     Indication: METASTATIC MALIGNANT MELANOMA
     Dosage: 170 MG, EVERY 3 WEEKS
     Route: 042
     Dates: start: 20160119, end: 20160119
  3. KEYTRUDA [Suspect]
     Active Substance: PEMBROLIZUMAB
     Dosage: 160 MG, Q3W
     Route: 042
     Dates: start: 20160209, end: 20160209

REACTIONS (4)
  - Malignant neoplasm progression [Unknown]
  - Parkinson^s disease [Not Recovered/Not Resolved]
  - Apallic syndrome [Not Recovered/Not Resolved]
  - Encephalitis autoimmune [Unknown]

NARRATIVE: CASE EVENT DATE: 2016
